FAERS Safety Report 21809216 (Version 1)
Quarter: 2023Q1

REPORT INFORMATION
  Report Type: Report from Study
  Country: US (occurrence: US)
  Receive Date: 20230103
  Receipt Date: 20230103
  Transmission Date: 20230418
  Serious: No
  Sender: FDA-Public Use
  Company Number: US-ABBVIE-4211317

PATIENT
  Sex: Male

DRUGS (8)
  1. HUMIRA [Suspect]
     Active Substance: ADALIMUMAB
     Indication: Product used for unknown indication
     Dosage: CF, FORM STRENGTH 80 MG
     Route: 058
  2. RINVOQ [Suspect]
     Active Substance: UPADACITINIB
     Indication: Colitis ulcerative
     Route: 048
     Dates: start: 20221025, end: 2022
  3. RINVOQ [Suspect]
     Active Substance: UPADACITINIB
     Indication: Colitis ulcerative
     Route: 048
     Dates: start: 2022
  4. HYDROCODONE BITARTRATE AND ACETAMINOPHEN [Concomitant]
     Active Substance: ACETAMINOPHEN\HYDROCODONE BITARTRATE
     Indication: Product used for unknown indication
     Dosage: 5-325MG
     Route: 048
  5. AMLODIPINE [Concomitant]
     Active Substance: AMLODIPINE BESYLATE
     Indication: Product used for unknown indication
     Dosage: FORM STRENGTH: 10 MG
     Route: 048
  6. PREDNISONE [Concomitant]
     Active Substance: PREDNISONE
     Indication: Product used for unknown indication
     Dosage: FORM STRENGTH: 5 MG
     Route: 048
  7. HYDROXYZINE PAMOATE [Concomitant]
     Active Substance: HYDROXYZINE PAMOATE
     Indication: Product used for unknown indication
     Dosage: FORM STRENGTH: 25 MG
     Route: 048
  8. OXYCODONE [Concomitant]
     Active Substance: OXYCODONE
     Indication: Product used for unknown indication
     Dosage: FORM STRENGTH: 5 MG
     Route: 048

REACTIONS (1)
  - Infection [Recovered/Resolved]

NARRATIVE: CASE EVENT DATE: 20220101
